FAERS Safety Report 5331812-8 (Version None)
Quarter: 2007Q2

REPORT INFORMATION
  Report Type: 
  Country: None (occurrence: None)
  Receive Date: 20070517
  Receipt Date: 20070508
  Transmission Date: 20071010
  Serious: Yes (Hospitalization)
  Sender: FDA-Public Use
  Company Number: US020072

PATIENT
  Age: 39 Year
  Sex: Female

DRUGS (4)
  1. MODIODAL [Suspect]
     Dosage: 1 TABLET QD ORAL
     Route: 048
     Dates: start: 20070313, end: 20070401
  2. CERAZETTE [Concomitant]
  3. ZOLADEX [Concomitant]
  4. NAPROXEN [Concomitant]

REACTIONS (3)
  - CEREBRAL HAEMORRHAGE [None]
  - HEADACHE [None]
  - NAUSEA [None]
